FAERS Safety Report 9643296 (Version 2)
Quarter: 2013Q4

REPORT INFORMATION
  Report Type: Spontaneous
  Country: DK (occurrence: DK)
  Receive Date: 20131024
  Receipt Date: 20131224
  Transmission Date: 20140711
  Serious: Yes (Other)
  Sender: FDA-Public Use
  Company Number: DK-ELI_LILLY_AND_COMPANY-DK201310004896

PATIENT
  Age: 32 Year
  Sex: Male

DRUGS (4)
  1. STRATTERA [Suspect]
     Indication: ATTENTION DEFICIT/HYPERACTIVITY DISORDER
     Dosage: 60 MG, QD
     Route: 065
     Dates: start: 20120718, end: 20120822
  2. STRATTERA [Suspect]
     Dosage: 80 MG, QD
     Route: 065
     Dates: start: 20120823, end: 20130101
  3. STRATTERA [Suspect]
     Dosage: 40 MG, UNK
     Route: 065
     Dates: start: 20130102
  4. RITALIN [Concomitant]
     Indication: ATTENTION DEFICIT/HYPERACTIVITY DISORDER
     Dosage: 10 MG, PRN
     Dates: start: 20120823

REACTIONS (1)
  - Colitis ulcerative [Recovered/Resolved]
